FAERS Safety Report 8378007-1 (Version None)
Quarter: 2012Q2

REPORT INFORMATION
  Report Type: 
  Country: None (occurrence: None)
  Receive Date: 20120522
  Receipt Date: 20120518
  Transmission Date: 20120825
  Serious: Yes (Other)
  Sender: FDA-Public Use
  Company Number: PHHY2011JP93397

PATIENT
  Sex: Female
  Weight: 55 kg

DRUGS (10)
  1. NEORAL [Suspect]
     Indication: APLASTIC ANAEMIA
     Dosage: 200 MG, DAILY
     Route: 048
     Dates: start: 20050802
  2. EXJADE [Suspect]
     Indication: IRON OVERLOAD
     Dosage: 500 MG, DAILY
     Route: 048
     Dates: start: 20090908, end: 20091109
  3. EXJADE [Suspect]
     Dosage: 500 MG, DAILY
     Route: 048
     Dates: start: 20091110
  4. PRIMOBOLAN-DEPOT INJ [Concomitant]
     Indication: APLASTIC ANAEMIA
     Dosage: 20 MG, UNK
     Route: 048
  5. NORVASC [Concomitant]
     Dosage: 2.5 MG, UNK
     Route: 048
     Dates: start: 20080617
  6. NORVASC [Concomitant]
     Dosage: 2.5 MG, UNK
     Route: 048
  7. ALLOPURINOL [Concomitant]
     Dosage: 200 MG, UNK
     Route: 048
     Dates: start: 20090428
  8. ALLOPURINOL [Concomitant]
     Dosage: 200 MG, UNK
     Route: 048
  9. NEORAL [Suspect]
     Dosage: 200 MG, DAILY
     Route: 048
  10. RED BLOOD CELLS, CONCENTRATED [Concomitant]
     Dosage: 2 UNITS EVERY 4 WEEKS
     Route: 065
     Dates: start: 20090907, end: 20100412

REACTIONS (5)
  - RENAL IMPAIRMENT [None]
  - GASTRITIS [None]
  - BLOOD CREATININE INCREASED [None]
  - SERUM FERRITIN INCREASED [None]
  - HEPATIC FUNCTION ABNORMAL [None]
